FAERS Safety Report 9788293 (Version 1)
Quarter: 2013Q4

REPORT INFORMATION
  Report Type: Spontaneous
  Country: NL (occurrence: NL)
  Receive Date: 20131230
  Receipt Date: 20131230
  Transmission Date: 20140711
  Serious: Yes (Hospitalization)
  Sender: FDA-Public Use
  Company Number: NL-AMGEN-NLDSP2013090491

PATIENT
  Age: 72 Year
  Sex: Female

DRUGS (3)
  1. XGEVA [Suspect]
     Indication: PRODUCT USED FOR UNKNOWN INDICATION
     Dosage: 120 UNK, Q4WK
     Route: 058
     Dates: end: 20131223
  2. CALCI CHEW [Concomitant]
     Dosage: 500 MG, UNK
  3. VITAMIN D3 [Concomitant]
     Dosage: 400 IU, UNK

REACTIONS (1)
  - General physical health deterioration [Unknown]
